FAERS Safety Report 6733481 (Version 5)
Quarter: 2012Q4

REPORT INFORMATION
  Report Type: 
  Country: US (occurrence: US)
  Receive Date: 20080822
  Receipt Date: 20121126
  Transmission Date: 20130627
  Serious: Yes (Other)
  Sender: FDA-Public Use
  Company Number: US-BAYER-200825207NA

PATIENT
  Age: 69 Year
  Sex: Male

DRUGS (2)
  1. NEXAVAR [Suspect]
     Indication: RENAL CELL CARCINOMA
     Dosage: 400 mg, BID
     Route: 048
     Dates: start: 20080517, end: 20110317
  2. COUMADIN [Concomitant]

REACTIONS (8)
  - Haematochezia [Not Recovered/Not Resolved]
  - Mass [Not Recovered/Not Resolved]
  - Skin discolouration [Not Recovered/Not Resolved]
  - Rash [Unknown]
  - Dermatitis bullous [Unknown]
  - Skin ulcer [Not Recovered/Not Resolved]
  - Skin discolouration [Unknown]
  - Diarrhoea [Unknown]
